FAERS Safety Report 11076515 (Version 2)
Quarter: 2015Q4

REPORT INFORMATION
  Report Type: Spontaneous
  Country: US (occurrence: US)
  Receive Date: 20150429
  Receipt Date: 20151020
  Transmission Date: 20160304
  Serious: No
  Sender: FDA-Public Use
  Company Number: US-GLAXOSMITHKLINE-US2015057739

PATIENT
  Age: 63 Year
  Sex: Male

DRUGS (8)
  1. ADVAIR DISKUS [Suspect]
     Active Substance: FLUTICASONE PROPIONATE\SALMETEROL XINAFOATE
     Indication: CHRONIC OBSTRUCTIVE PULMONARY DISEASE
     Dosage: 1 PUFF(S), BID
     Route: 055
     Dates: start: 201402
  2. WELLBUTRIN SR [Concomitant]
     Active Substance: BUPROPION HYDROCHLORIDE
  3. COZAAR [Concomitant]
     Active Substance: LOSARTAN POTASSIUM
  4. LOZOL [Concomitant]
     Active Substance: INDAPAMIDE
  5. ZYLOPRIM [Concomitant]
     Active Substance: ALLOPURINOL
  6. GLYBURIDE. [Concomitant]
     Active Substance: GLYBURIDE
  7. COREG [Concomitant]
     Active Substance: CARVEDILOL
  8. XANAX [Concomitant]
     Active Substance: ALPRAZOLAM

REACTIONS (3)
  - Cough [Recovered/Resolved]
  - Product quality issue [Unknown]
  - Foreign body [Recovered/Resolved]

NARRATIVE: CASE EVENT DATE: 20150427
